FAERS Safety Report 13026941 (Version 4)
Quarter: 2017Q1

REPORT INFORMATION
  Report Type: Report from Study
  Country: CA (occurrence: CA)
  Receive Date: 20161214
  Receipt Date: 20170127
  Transmission Date: 20170428
  Serious: Yes (Hospitalization)
  Sender: FDA-Public Use
  Company Number: CA-PFIZER INC-2016570031

PATIENT
  Age: 62 Year
  Sex: Male

DRUGS (15)
  1. DOXORUBICIN HCL [Suspect]
     Active Substance: DOXORUBICIN HYDROCHLORIDE
     Indication: B-CELL LYMPHOMA
     Dosage: 50 MG/M2, EVERY 3 WEEKS  (1 IN 21 D)
     Route: 042
     Dates: start: 20160922
  2. VENETOCLAX [Suspect]
     Active Substance: VENETOCLAX
     Indication: B-CELL LYMPHOMA
     Dosage: 800 MG, DAILY
     Route: 048
     Dates: start: 20160905
  3. RITUXIMAB [Suspect]
     Active Substance: RITUXIMAB
     Indication: B-CELL LYMPHOMA
     Dosage: 375 MG/M2, EVERY 3 WEEKS (1 IN 21 D)
     Route: 042
     Dates: start: 20160901
  4. TECTA [Concomitant]
     Active Substance: PANTOPRAZOLE MAGNESIUM
     Indication: GASTROOESOPHAGEAL REFLUX DISEASE
     Dosage: UNK
     Dates: start: 20160815
  5. ACETAMINOPHEN. [Concomitant]
     Active Substance: ACETAMINOPHEN
     Indication: PROPHYLAXIS
     Dosage: UNK
     Dates: start: 20160901
  6. NEUPOGEN [Concomitant]
     Active Substance: FILGRASTIM
     Dosage: UNK
     Dates: start: 20161128
  7. VINCRISTINE SULFATE. [Suspect]
     Active Substance: VINCRISTINE SULFATE
     Indication: B-CELL LYMPHOMA
     Dosage: 1.4 MG/M2, EVERY 3 WEEKS (1 IN 21 D) (DOSE CAP OF 2 MG, PER PROTOCOL MOST RECENT DOSE: 24/NOV/2016;
     Route: 042
     Dates: start: 20160922
  8. ACETAMINOPHEN. [Concomitant]
     Active Substance: ACETAMINOPHEN
     Indication: ABDOMINAL PAIN
     Dosage: UNK
     Dates: start: 20160907, end: 20161117
  9. PULMICORT TURBUHALER [Concomitant]
     Active Substance: BUDESONIDE
     Dosage: UNK
     Dates: start: 20160907
  10. POTASSIUM CHLORIDE. [Concomitant]
     Active Substance: POTASSIUM CHLORIDE
     Indication: HYPOKALAEMIA
     Dosage: UNK
     Dates: start: 20161205, end: 20161207
  11. PREDNISONE. [Suspect]
     Active Substance: PREDNISONE
     Indication: B-CELL LYMPHOMA
     Dosage: 100 MG, 1X/DAY (DAYS 1 - 5 OF EACH 21-DAY CYCLE)
     Route: 048
     Dates: start: 20160901
  12. NEUPOGEN [Concomitant]
     Active Substance: FILGRASTIM
     Indication: PROPHYLAXIS
     Dosage: UNK
     Dates: start: 20161107, end: 20161113
  13. CYCLOPHOSPHAMIDE. [Suspect]
     Active Substance: CYCLOPHOSPHAMIDE
     Indication: B-CELL LYMPHOMA
     Dosage: 750 MG/M2, EVERY 3 WEEKS  (1 IN 21 D)
     Route: 042
     Dates: start: 20160922
  14. DIPHENHYDRAMINE. [Concomitant]
     Active Substance: DIPHENHYDRAMINE
     Indication: PROPHYLAXIS
     Dosage: UNK
     Dates: start: 20160901
  15. METOPROLOL. [Concomitant]
     Active Substance: METOPROLOL
     Indication: ATRIAL FIBRILLATION
     Dosage: UNK
     Dates: start: 20161205, end: 20161206

REACTIONS (1)
  - Febrile neutropenia [Recovered/Resolved]

NARRATIVE: CASE EVENT DATE: 20161203
